FAERS Safety Report 9727961 (Version 1)
Quarter: 2013Q4

REPORT INFORMATION
  Report Type: Report from Study
  Country: US (occurrence: US)
  Receive Date: 20131204
  Receipt Date: 20131204
  Transmission Date: 20140711
  Serious: Yes (Other)
  Sender: FDA-Public Use
  Company Number: US-ROCHE-1308945

PATIENT
  Age: 58 Year
  Sex: Male

DRUGS (18)
  1. RIBAVIRIN [Suspect]
     Indication: CHRONIC HEPATITIS C
     Route: 048
     Dates: start: 20130821
  2. TELAPREVIR [Suspect]
     Indication: CHRONIC HEPATITIS C
     Route: 048
     Dates: start: 20130821
  3. FISH OIL [Concomitant]
     Route: 065
     Dates: start: 20100827
  4. AMLODIPINE BESYLATE [Concomitant]
     Route: 065
     Dates: start: 20091007
  5. ALBUTEROL [Concomitant]
     Route: 065
     Dates: start: 20100410
  6. BUDESONIDE/FORMOTEROL FUMARATE [Concomitant]
     Route: 065
     Dates: start: 20110711
  7. CALCIPOTRIENE [Concomitant]
     Route: 065
     Dates: start: 20120514
  8. DOCUSATE SODIUM [Concomitant]
     Route: 065
     Dates: start: 20120518
  9. WITCH HAZEL [Concomitant]
     Route: 065
     Dates: start: 20120518
  10. HYDROCORTISONE ACETATE/PRAMOCAINE HYDROCHLORIDE [Concomitant]
     Route: 065
     Dates: start: 20120606
  11. MECLIZINE HCL [Concomitant]
     Route: 065
     Dates: start: 20130413
  12. BUPROPION HCL [Concomitant]
     Route: 065
     Dates: start: 20130508
  13. LIDOCAINE [Concomitant]
     Route: 065
     Dates: start: 20130606
  14. CARMELLOSE SODIUM [Concomitant]
     Route: 065
     Dates: start: 20130802
  15. TEMAZEPAM [Concomitant]
     Route: 065
     Dates: start: 20130821
  16. HYDROXYZINE HCL [Concomitant]
     Route: 065
     Dates: start: 20130827
  17. COLLOIDAL OATMEAL [Concomitant]
     Route: 065
     Dates: start: 20130828
  18. PEG-INTERFERON LAMBDA [Suspect]
     Indication: CHRONIC HEPATITIS C
     Route: 058
     Dates: start: 20130821

REACTIONS (1)
  - Ocular icterus [Not Recovered/Not Resolved]
